FAERS Safety Report 9743924 (Version 1)
Quarter: 2013Q4

REPORT INFORMATION
  Report Type: Spontaneous
  Country: US (occurrence: US)
  Receive Date: 20131210
  Receipt Date: 20131210
  Transmission Date: 20140711
  Serious: No
  Sender: FDA-Public Use
  Company Number: US-BIOGENIDEC-2013BI097952

PATIENT
  Age: 49 Year
  Sex: Female
  Weight: 63 kg

DRUGS (10)
  1. TECFIDERA [Suspect]
     Indication: PRODUCT USED FOR UNKNOWN INDICATION
     Route: 048
     Dates: start: 20130810
  2. MIRAPEX [Concomitant]
  3. NEURONTIN [Concomitant]
  4. BACLOFEN [Concomitant]
  5. PROVIGIL [Concomitant]
  6. ZYRTEC [Concomitant]
  7. CALCIUM + D [Concomitant]
  8. FISH OIL [Concomitant]
  9. VITAMIN D [Concomitant]
  10. B COMPLEX [Concomitant]

REACTIONS (3)
  - Flushing [Unknown]
  - Burning sensation [Unknown]
  - Abdominal discomfort [Unknown]
